FAERS Safety Report 13112961 (Version 1)
Quarter: 2017Q1

REPORT INFORMATION
  Report Type: Spontaneous
  Country: US (occurrence: US)
  Receive Date: 20170113
  Receipt Date: 20170113
  Transmission Date: 20170428
  Serious: No
  Sender: FDA-Public Use
  Company Number: None

PATIENT
  Age: 64 Year
  Sex: Male
  Weight: 74.46 kg

DRUGS (1)
  1. ZYTIGA [Suspect]
     Active Substance: ABIRATERONE ACETATE
     Indication: NEOPLASM PROSTATE
     Dosage: 4 TABS DAILY PO
     Route: 048
     Dates: start: 20161102

REACTIONS (5)
  - Urinary retention [None]
  - Balance disorder [None]
  - Decreased appetite [None]
  - Incoherent [None]
  - Dysuria [None]
